FAERS Safety Report 10667808 (Version 1)
Quarter: 2014Q4

REPORT INFORMATION
  Report Type: Spontaneous
  Country: US (occurrence: None)
  Receive Date: 20141208
  Receipt Date: 20141208
  Transmission Date: 20150529
  Serious: No
  Sender: FDA-Public Use
  Company Number: 2014TUS006536

PATIENT
  Age: 18 Year
  Sex: Female
  Weight: 59.9 kg

DRUGS (3)
  1. BRINTELLIX [Suspect]
     Active Substance: VORTIOXETINE HYDROBROMIDE
     Indication: DEPRESSION
     Dosage: 10 MG EVERY MORNING, ORAL
     Route: 048
     Dates: start: 20140618
  2. SEROQUEL [Concomitant]
     Active Substance: QUETIAPINE FUMARATE
  3. EXCEDRIN MIGRAINE (ACETYLSALICYLIC ACID, CAFFEINE, PARACETAMOL) [Concomitant]

REACTIONS (4)
  - Headache [None]
  - Nausea [None]
  - Vomiting [None]
  - Drug ineffective [None]
